FAERS Safety Report 9048472 (Version 1)
Quarter: 2013Q1

REPORT INFORMATION
  Report Type: Spontaneous
  Country: US (occurrence: None)
  Receive Date: 20130130
  Receipt Date: 20130130
  Transmission Date: 20140127
  Serious: Yes (Other)
  Sender: FDA-Public Use
  Company Number: None

PATIENT
  Age: 81 Year
  Sex: Female
  Weight: 64.2 kg

DRUGS (14)
  1. JANUVIA [Suspect]
     Indication: TYPE 2 DIABETES MELLITUS
     Dosage: CHRONIC
     Route: 048
  2. GLUCOPHAGE [Suspect]
     Indication: TYPE 2 DIABETES MELLITUS
     Dosage: CHRONIC
     Route: 048
  3. LANTUS [Suspect]
     Dosage: 40 UNITS SC. QHS
  4. CORGARD [Concomitant]
  5. CENTRUM SILVER [Concomitant]
  6. ZYRTEC [Concomitant]
  7. GLUCOPHAGE [Concomitant]
  8. ALLOPURINOL [Concomitant]
  9. TRICOR [Concomitant]
  10. FISH OIL [Concomitant]
  11. VYTORIN [Concomitant]
  12. SYNTHROID [Concomitant]
  13. VIT D [Concomitant]
  14. PREDNISONE [Concomitant]

REACTIONS (5)
  - Encephalopathy [None]
  - Hypoglycaemia [None]
  - Hypothermia [None]
  - Hypoxia [None]
  - Clostridium difficile sepsis [None]
